FAERS Safety Report 8490589-8 (Version None)
Quarter: 2012Q3

REPORT INFORMATION
  Report Type: 
  Country: None (occurrence: None)
  Receive Date: 20120705
  Receipt Date: 20120627
  Transmission Date: 20120928
  Serious: Yes (Hospitalization, Other)
  Sender: FDA-Public Use
  Company Number: BR-ABBOTT-11P-020-0727002-00

PATIENT
  Sex: Female

DRUGS (4)
  1. HUMIRA [Suspect]
     Indication: RHEUMATOID ARTHRITIS
     Route: 058
     Dates: start: 20070907, end: 20110525
  2. UNKNOWN MAGISTRAL FORMULA [Concomitant]
     Indication: MUSCULOSKELETAL PAIN
     Route: 048
  3. METHOTREXATE [Concomitant]
     Indication: MUSCULOSKELETAL PAIN
     Route: 048
  4. CALCIUM [Concomitant]
     Indication: BONE DISORDER
     Route: 048

REACTIONS (7)
  - UTERINE HAEMORRHAGE [None]
  - ABDOMINAL PAIN [None]
  - MENORRHAGIA [None]
  - LEIOMYOMA [None]
  - UNEVALUABLE EVENT [None]
  - ANAEMIA [None]
  - VAGINAL HAEMORRHAGE [None]
